FAERS Safety Report 5610788-X (Version None)
Quarter: 2008Q1

REPORT INFORMATION
  Report Type: 
  Country: None (occurrence: None)
  Receive Date: 20080201
  Receipt Date: 20080128
  Transmission Date: 20080703
  Serious: Yes (Other)
  Sender: FDA-Public Use
  Company Number: FR-BRISTOL-MYERS SQUIBB COMPANY-14030712

PATIENT
  Age: 40 Year
  Sex: Female

DRUGS (5)
  1. ORENCIA [Suspect]
     Indication: RHEUMATOID ARTHRITIS
     Dates: start: 20051001
  2. NOVATREX [Concomitant]
  3. CORTANCYL [Concomitant]
     Dosage: INCREASED TO 25MG/DAY ON 10DEC2007
  4. KETOPROFEN [Concomitant]
     Dates: end: 20071207
  5. REMICADE [Concomitant]
     Dates: start: 20070201, end: 20071001

REACTIONS (2)
  - GLOMERULONEPHRITIS [None]
  - PROTEINURIA [None]
